FAERS Safety Report 15770344 (Version 2)
Quarter: 2019Q2

REPORT INFORMATION
  Report Type: Spontaneous
  Country: US (occurrence: US)
  Receive Date: 20181228
  Receipt Date: 20190506
  Transmission Date: 20190711
  Serious: Yes (Hospitalization, Other)
  Sender: FDA-Public Use
  Company Number: US-PFIZER INC-2018530626

PATIENT
  Age: 3 Year
  Sex: Female

DRUGS (2)
  1. GENOTROPIN MQ [Suspect]
     Active Substance: SOMATROPIN
     Dosage: 0.6 MG, ALTERNATE DAY (ALTERNATING DAILY WITH 0.4 MG)
     Dates: start: 20160505, end: 2018
  2. GENOTROPIN MQ [Suspect]
     Active Substance: SOMATROPIN
     Indication: GROWTH HORMONE DEFICIENCY
     Dosage: 0.4 MG, ALTERNATE DAY (ALTERNATING DAILY WITH 0.6 MG)
     Dates: start: 20160505, end: 2018

REACTIONS (3)
  - Influenza [Unknown]
  - Seizure [Unknown]
  - Febrile convulsion [Unknown]
